FAERS Safety Report 5615048-9 (Version None)
Quarter: 2008Q1

REPORT INFORMATION
  Report Type: 
  Country: None (occurrence: None)
  Receive Date: 20080205
  Receipt Date: 20080205
  Transmission Date: 20080703
  Serious: Yes (Other)
  Sender: FDA-Public Use
  Company Number: None

PATIENT
  Age: 54 Year
  Sex: Female
  Weight: 65.7716 kg

DRUGS (2)
  1. BOTOX [Suspect]
     Dates: start: 20070627, end: 20070627
  2. TETANUS SHOT [Suspect]
     Indication: IMMUNISATION
     Dates: start: 20070620, end: 20070620

REACTIONS (4)
  - BREAST CANCER STAGE II [None]
  - INFLUENZA LIKE ILLNESS [None]
  - NO THERAPEUTIC RESPONSE [None]
  - NONSPECIFIC REACTION [None]
